FAERS Safety Report 7066219-9 (Version None)
Quarter: 2010Q4

REPORT INFORMATION
  Report Type: 
  Country: None (occurrence: None)
  Receive Date: 20101027
  Receipt Date: 20100315
  Transmission Date: 20110411
  Serious: Yes (Other)
  Sender: FDA-Public Use
  Company Number: HQWYE634714JAN05

PATIENT
  Sex: Female

DRUGS (11)
  1. PREMPRO [Suspect]
  2. PROVERA [Suspect]
  3. ESTROGENS [Suspect]
  4. MEDROXYPROGESTERONE ACETATE [Suspect]
  5. NORLUTATE [Suspect]
  6. ORTHO-EST [Suspect]
  7. ESTRADERM [Suspect]
  8. CLIMARA [Suspect]
  9. PREMARIN [Suspect]
  10. PREMARIN [Suspect]
  11. ESTRACE [Suspect]

REACTIONS (1)
  - BREAST CANCER [None]
